FAERS Safety Report 7009119-2 (Version None)
Quarter: 2010Q3

REPORT INFORMATION
  Report Type: 
  Country: None (occurrence: None)
  Receive Date: 20100923
  Receipt Date: 20100512
  Transmission Date: 20110219
  Serious: No
  Sender: FDA-Public Use
  Company Number: US-MYLANLABS-2010S1008635

PATIENT
  Age: 46 Year
  Sex: Female

DRUGS (1)
  1. ENALAPRIL MALEATE [Suspect]
     Indication: BLOOD PRESSURE INCREASED
     Route: 048
     Dates: start: 20100301

REACTIONS (5)
  - AGITATION [None]
  - EYELID OEDEMA [None]
  - FLUSHING [None]
  - MIGRAINE [None]
  - SWELLING FACE [None]
